FAERS Safety Report 7903186-7 (Version None)
Quarter: 2011Q4

REPORT INFORMATION
  Report Type: 
  Country: None (occurrence: None)
  Receive Date: 20111103
  Receipt Date: 20111028
  Transmission Date: 20120403
  Serious: Yes (Death, Hospitalization)
  Sender: FDA-Public Use
  Company Number: 2011SP019476

PATIENT
  Age: 55 Year
  Sex: Male
  Weight: 58.96 kg

DRUGS (36)
  1. INTRON A [Suspect]
     Indication: HEPATITIS C
     Dosage: SC
     Route: 058
     Dates: start: 20110110, end: 20110314
  2. CATAPRES-TTS-2 [Concomitant]
  3. DIFLUCAN [Concomitant]
  4. HUMULIN R/NOVOLIN R [Concomitant]
  5. SODIUM CHLORIDE [Concomitant]
  6. XANAX [Concomitant]
  7. SODIUM CHLORIDE [Concomitant]
  8. FENTANYL/NS [Concomitant]
  9. LANTUS [Concomitant]
  10. SOLU-MEDROL [Concomitant]
  11. NITROGLYCERIN [Concomitant]
  12. PRILOSEC [Concomitant]
  13. HEPARIN LOCK-FLUSH [Concomitant]
  14. SODIUM CHLORIDE [Concomitant]
  15. ALDACTONE [Concomitant]
  16. ULTRAM [Concomitant]
  17. DORIBAX [Concomitant]
  18. CORDARONE [Concomitant]
  19. DEXTROSE [Concomitant]
  20. REGLAN [Concomitant]
  21. ATROPINE SULFATE [Concomitant]
  22. GLUCAGON [Concomitant]
  23. SODIUM CHLORIDE [Concomitant]
  24. THEOPHYLLINE [Concomitant]
  25. REBETOL [Suspect]
     Indication: HEPATITIS C
     Dosage: 1000 MG;QD;PO
     Route: 048
     Dates: start: 20110110, end: 20110404
  26. NORVASC [Concomitant]
  27. COMBIVENT [Concomitant]
  28. VERSED [Concomitant]
  29. ACETAMINOPHEN [Concomitant]
  30. ACETAMINOPHEN [Concomitant]
  31. TUSSIONEX [Concomitant]
  32. ALBUTEROL [Concomitant]
  33. HEPARIN SODIUM [Concomitant]
  34. PROTONIX [Concomitant]
  35. COMBIVENT [Concomitant]
  36. DEXTROSE 50% IN WATER [Concomitant]

REACTIONS (17)
  - NAUSEA [None]
  - CONSTIPATION [None]
  - ASTHENIA [None]
  - RESPIRATORY DISTRESS [None]
  - PLATELET COUNT DECREASED [None]
  - CREPITATIONS [None]
  - BLOOD GLUCOSE INCREASED [None]
  - PNEUMONIA [None]
  - DYSPNOEA [None]
  - DECREASED APPETITE [None]
  - CHRONIC OBSTRUCTIVE PULMONARY DISEASE [None]
  - GAIT DISTURBANCE [None]
  - DIZZINESS [None]
  - DEHYDRATION [None]
  - VOMITING [None]
  - COUGH [None]
  - CHILLS [None]
